FAERS Safety Report 6921325-1 (Version None)
Quarter: 2010Q3

REPORT INFORMATION
  Report Type: 
  Country: None (occurrence: None)
  Receive Date: 20100812
  Receipt Date: 20100805
  Transmission Date: 20110219
  Serious: Yes (Disabling)
  Sender: FDA-Public Use
  Company Number: D0068338A

PATIENT
  Sex: Male
  Weight: 73 kg

DRUGS (3)
  1. SULTANOL [Suspect]
     Dosage: 8DROP FOUR TIMES PER DAY
     Route: 055
  2. BERODUAL [Suspect]
     Dosage: 2DROP FOUR TIMES PER DAY
     Route: 055
  3. EMSER SOLE [Suspect]
     Dosage: 1AMP PER DAY
     Route: 055

REACTIONS (3)
  - EYE PRURITUS [None]
  - OCULAR DISCOMFORT [None]
  - VISION BLURRED [None]
